FAERS Safety Report 25284077 (Version 1)
Quarter: 2025Q2

REPORT INFORMATION
  Report Type: Report from Study
  Country: CO (occurrence: CO)
  Receive Date: 20250508
  Receipt Date: 20250508
  Transmission Date: 20250717
  Serious: Yes (Death, Other)
  Sender: GLAXOSMITHKLINE
  Company Number: CO-GSK-CO2023AMR158123

PATIENT

DRUGS (3)
  1. BELIMUMAB [Suspect]
     Active Substance: BELIMUMAB
     Indication: Systemic lupus erythematosus
     Dosage: 640 MG, MO, (EVERY 30 DAYS)
     Dates: start: 20200924
  2. BELIMUMAB [Suspect]
     Active Substance: BELIMUMAB
     Dosage: 400 MG, Q4W
  3. BELIMUMAB [Suspect]
     Active Substance: BELIMUMAB
     Dosage: 640 MG, Q4W (EVERY 28 DAYS)

REACTIONS (14)
  - Death [Fatal]
  - Influenza [Unknown]
  - Hordeolum [Not Recovered/Not Resolved]
  - Dyspnoea [Not Recovered/Not Resolved]
  - Productive cough [Not Recovered/Not Resolved]
  - Skin lesion [Not Recovered/Not Resolved]
  - Joint swelling [Not Recovered/Not Resolved]
  - Swelling face [Not Recovered/Not Resolved]
  - Arthritis [Not Recovered/Not Resolved]
  - Fluid retention [Not Recovered/Not Resolved]
  - Swelling [Not Recovered/Not Resolved]
  - Spinal pain [Not Recovered/Not Resolved]
  - Coccydynia [Not Recovered/Not Resolved]
  - Bone pain [Not Recovered/Not Resolved]

NARRATIVE: CASE EVENT DATE: 20231201
